FAERS Safety Report 17870758 (Version 1)
Quarter: 2020Q2

REPORT INFORMATION
  Report Type: Spontaneous
  Country: US (occurrence: US)
  Receive Date: 20200607
  Receipt Date: 20200607
  Transmission Date: 20200714
  Serious: Yes (Other)
  Sender: FDA-Public Use
  Company Number: None

PATIENT
  Age: 40 Year
  Sex: Female

DRUGS (1)
  1. NP THYROID [Suspect]
     Active Substance: LEVOTHYROXINE\LIOTHYRONINE
     Indication: AUTOIMMUNE THYROIDITIS
     Route: 048
     Dates: start: 20180813

REACTIONS (9)
  - Headache [None]
  - Irritability [None]
  - Depression [None]
  - Pain [None]
  - Autoimmune thyroiditis [None]
  - Weight increased [None]
  - Peripheral swelling [None]
  - Lymphadenopathy [None]
  - Condition aggravated [None]

NARRATIVE: CASE EVENT DATE: 20191001
